FAERS Safety Report 8209217-1 (Version None)
Quarter: 2012Q1

REPORT INFORMATION
  Report Type: 
  Country: None (occurrence: None)
  Receive Date: 20120314
  Receipt Date: 20120305
  Transmission Date: 20120608
  Serious: Yes (Other)
  Sender: FDA-Public Use
  Company Number: PHHY2012AU020038

PATIENT
  Age: 52 Year
  Sex: Female

DRUGS (20)
  1. PREMARIN [Concomitant]
     Dosage: 0.625 MG
  2. VALACICLOVIR [Concomitant]
     Indication: HERPES ZOSTER
     Dosage: UNK UKN, UNK
  3. METOCLOPRAMIDE [Concomitant]
     Dosage: UNK UKN, UNK
  4. CELECOXIB [Concomitant]
     Dosage: 200 MG AD LIB
  5. FLU VACCINATION [Concomitant]
     Dosage: UNK UKN, UNK
  6. DIAZEPAM [Concomitant]
     Dosage: 5 MG PRN
  7. PRAVASTATIN [Concomitant]
     Dosage: 40 MG
  8. PENICILLIN [Concomitant]
     Dosage: UNK UKN, UNK
  9. TRAMADOL HCL [Concomitant]
     Dosage: UNK UKN, UNK
  10. LEVOTHYROXINE SODIUM [Concomitant]
     Dosage: 100 MG, QD
  11. CEPHALEXIN [Concomitant]
     Dosage: UNK UKN, UNK
  12. VENLAFAXINE [Suspect]
     Dosage: 60 MG, QD
  13. VENLAFAXINE [Suspect]
     Indication: EMOTIONAL DISTRESS
     Dosage: UNK UKN, UNK
  14. VENLAFAXINE [Suspect]
     Dosage: 300 MG, QD
  15. FLUTICASONE PROPIONATE/SALMETEROL [Concomitant]
     Dosage: UNK UKN, UNK
  16. ATORVASTATIN [Concomitant]
     Indication: BLOOD CHOLESTEROL INCREASED
     Dosage: PRN
  17. LOVASTATIN [Concomitant]
     Dosage: UNK UKN, UNK
  18. TENORMIN [Concomitant]
     Dosage: 12.5 MG, QD
  19. IRBESARTAN [Concomitant]
     Dosage: 300 MG, QD
  20. ERYTHROMYCIN [Concomitant]
     Dosage: UNK UKN, UNK

REACTIONS (13)
  - VIOLENCE-RELATED SYMPTOM [None]
  - DEPRESSION [None]
  - SOMATOFORM DISORDER [None]
  - STRESS AT WORK [None]
  - ANXIETY [None]
  - FEELING ABNORMAL [None]
  - SUICIDAL IDEATION [None]
  - IRRITABILITY [None]
  - ASTHENIA [None]
  - MOOD SWINGS [None]
  - HOMICIDAL IDEATION [None]
  - HYPERBILIRUBINAEMIA [None]
  - AKATHISIA [None]
